FAERS Safety Report 4882109-1 (Version None)
Quarter: 2006Q1

REPORT INFORMATION
  Report Type: 
  Country: None (occurrence: None)
  Receive Date: 20060117
  Receipt Date: 20050218
  Transmission Date: 20060701
  Serious: Yes (Hospitalization, Other)
  Sender: FDA-Public Use
  Company Number: US-MERCK-0502USA02975

PATIENT
  Age: 62 Year
  Sex: Female
  Weight: 84 kg

DRUGS (9)
  1. VIOXX [Suspect]
     Indication: SPINAL COLUMN STENOSIS
     Route: 048
     Dates: end: 20041030
  2. MOTRIN [Concomitant]
     Route: 065
  3. PRILOSEC [Concomitant]
     Route: 065
  4. PLAVIX [Concomitant]
     Route: 065
  5. ZOCOR [Concomitant]
     Route: 065
  6. ASPIRIN [Concomitant]
     Route: 065
  7. PREMPRO [Concomitant]
     Route: 065
  8. PAXIL [Concomitant]
     Route: 065
  9. NEURONTIN [Concomitant]
     Route: 065

REACTIONS (6)
  - ANGINA PECTORIS [None]
  - CEREBROVASCULAR ACCIDENT [None]
  - DYSPNOEA [None]
  - EMBOLISM [None]
  - SINUS DISORDER [None]
  - SYNCOPE [None]
